FAERS Safety Report 13772761 (Version 1)
Quarter: 2017Q3

REPORT INFORMATION
  Report Type: Spontaneous
  Country: FR (occurrence: FR)
  Receive Date: 20170720
  Receipt Date: 20170720
  Transmission Date: 20171127
  Serious: Yes (Other)
  Sender: FDA-Public Use
  Company Number: FR-JNJFOC-20170708342

PATIENT
  Sex: Female

DRUGS (5)
  1. SINGULAIR [Concomitant]
     Active Substance: MONTELUKAST SODIUM
     Indication: URTICARIA CHRONIC
     Route: 065
  2. STELARA [Suspect]
     Active Substance: USTEKINUMAB
     Indication: ANKYLOSING SPONDYLITIS
     Route: 058
     Dates: start: 201610
  3. STELARA [Suspect]
     Active Substance: USTEKINUMAB
     Indication: PSORIATIC ARTHROPATHY
     Route: 058
     Dates: start: 201610
  4. STELARA [Suspect]
     Active Substance: USTEKINUMAB
     Indication: CROHN^S DISEASE
     Route: 058
     Dates: start: 201610
  5. BILASKA [Concomitant]
     Active Substance: BILASTINE
     Indication: URTICARIA CHRONIC
     Route: 065

REACTIONS (3)
  - Arrhythmia [Not Recovered/Not Resolved]
  - Migraine [Not Recovered/Not Resolved]
  - Tendonitis [Not Recovered/Not Resolved]
